FAERS Safety Report 25609930 (Version 2)
Quarter: 2025Q3

REPORT INFORMATION
  Report Type: Spontaneous
  Country: BR (occurrence: BR)
  Receive Date: 20250728
  Receipt Date: 20250731
  Transmission Date: 20251020
  Serious: Yes (Other)
  Sender: NOVO NORDISK
  Company Number: BR-NOVOPROD-1443963

PATIENT
  Age: 70 Year
  Sex: Male
  Weight: 86 kg

DRUGS (5)
  1. VICTOZA [Suspect]
     Active Substance: LIRAGLUTIDE
     Indication: Glucose tolerance impaired
     Route: 058
     Dates: start: 202505
  2. VICTOZA [Suspect]
     Active Substance: LIRAGLUTIDE
     Dosage: 1.80 MG, QD
     Route: 058
     Dates: end: 2025
  3. DAPAGLIFLOZIN [Concomitant]
     Active Substance: DAPAGLIFLOZIN
     Indication: Diabetes mellitus
  4. SAXENDA [Suspect]
     Active Substance: LIRAGLUTIDE
     Indication: Product used for unknown indication
  5. SAXENDA [Suspect]
     Active Substance: LIRAGLUTIDE
     Dates: start: 202507

REACTIONS (3)
  - Type 2 diabetes mellitus [Unknown]
  - Product use in unapproved indication [Recovered/Resolved]
  - Wrong product procured [Unknown]

NARRATIVE: CASE EVENT DATE: 20250501
